FAERS Safety Report 9694457 (Version 1)
Quarter: 2013Q4

REPORT INFORMATION
  Report Type: Spontaneous
  Country: DE (occurrence: DE)
  Receive Date: 20131118
  Receipt Date: 20131118
  Transmission Date: 20140711
  Serious: Yes (Other)
  Sender: FDA-Public Use
  Company Number: DE-UCBSA-103158

PATIENT
  Sex: Male

DRUGS (4)
  1. KEPPRA [Suspect]
     Dosage: 1 TABLET OF 1000 MG INGESTED ORALLY
     Route: 048
     Dates: start: 20131110
  2. ACETYLSALICYLIC ACID [Suspect]
     Dosage: 1 TABLET OF 100 MG INGESTED ORALLY
     Route: 048
     Dates: start: 20131110
  3. SIMVAHEXAL [Suspect]
     Dosage: 1 TABLET DAILY (DOSE UNKNOWN)
     Route: 048
     Dates: start: 20131110
  4. DELIX [Suspect]
     Dosage: INGESTED ORALLY (DOSE UNKNOWN)
     Route: 048
     Dates: start: 20131110

REACTIONS (1)
  - Accidental exposure to product [Unknown]
